FAERS Safety Report 23639556 (Version 1)
Quarter: 2024Q1

REPORT INFORMATION
  Report Type: Report from Study
  Country: US (occurrence: US)
  Receive Date: 20240316
  Receipt Date: 20240316
  Transmission Date: 20240410
  Serious: Yes (Other)
  Sender: FDA-Public Use
  Company Number: US-JNJFOC-20240325125

PATIENT
  Sex: Male

DRUGS (2)
  1. SPRAVATO [Suspect]
     Active Substance: ESKETAMINE
     Indication: Depression
     Dosage: ^56 MG, 2 TOTAL DOSES^
     Dates: start: 20230911, end: 20230915
  2. SPRAVATO [Suspect]
     Active Substance: ESKETAMINE
     Dosage: ^84 MG, 15 TOTAL DOSES^?MENTIONED THAT PATIENT RECEIVES TREATMENT EVERY 3 WEEKS
     Dates: start: 20230919, end: 20240216

REACTIONS (2)
  - Atrial fibrillation [Unknown]
  - Skin laceration [Unknown]
